FAERS Safety Report 9341727 (Version 1)
Quarter: 2013Q2

REPORT INFORMATION
  Report Type: Spontaneous
  Country: US (occurrence: US)
  Receive Date: 20130611
  Receipt Date: 20130611
  Transmission Date: 20140414
  Serious: Yes (Hospitalization)
  Sender: FDA-Public Use
  Company Number: US-BAYER-2013-071417

PATIENT
  Age: 51 Year
  Sex: Female

DRUGS (5)
  1. OCELLA [Suspect]
  2. LORATADINE [Concomitant]
     Dosage: UNK, P.R.N
     Dates: start: 20120629
  3. PREVACID [Concomitant]
     Dosage: 30 MG, DAILY
     Dates: start: 20120629
  4. LISINOPRIL [Concomitant]
     Dosage: 40 MG, DAILY
     Dates: start: 20120629
  5. SIMVASTATIN [Concomitant]

REACTIONS (1)
  - Deep vein thrombosis [None]
